FAERS Safety Report 5297313-0 (Version None)
Quarter: 2007Q2

REPORT INFORMATION
  Report Type: 
  Country: None (occurrence: None)
  Receive Date: 20070409
  Receipt Date: 20070323
  Transmission Date: 20071010
  Serious: Yes (Hospitalization)
  Sender: FDA-Public Use
  Company Number: MEDI-0005597

PATIENT
  Age: 2 Month
  Sex: Male

DRUGS (1)
  1. SYNAGIS [Suspect]
     Indication: ANTIVIRAL PROPHYLAXIS
     Dates: start: 20051101, end: 20051101

REACTIONS (3)
  - FLUID OVERLOAD [None]
  - PNEUMONIA RESPIRATORY SYNCYTIAL VIRAL [None]
  - UPPER RESPIRATORY TRACT INFECTION [None]
